FAERS Safety Report 19263282 (Version 1)
Quarter: 2021Q2

REPORT INFORMATION
  Report Type: Spontaneous
  Country: SE (occurrence: SE)
  Receive Date: 20210517
  Receipt Date: 20210517
  Transmission Date: 20210717
  Serious: Yes (Other)
  Sender: FDA-Public Use
  Company Number: SE-CURIUM-200800393

PATIENT
  Age: 28 Year
  Sex: Female

DRUGS (2)
  1. THYROID HORMONES [Concomitant]
     Active Substance: UNSPECIFIED INGREDIENT
     Dosage: T3 W/DRAWN 4 WKS AND HORMONES 2 WKS PRIOR TO EVENT
  2. SODIUM IODIDE I 131 [Suspect]
     Active Substance: SODIUM IODIDE I-131
     Route: 065
     Dates: start: 2005, end: 2005

REACTIONS (3)
  - Contraindicated product administered [Unknown]
  - Abortion induced [Unknown]
  - Maternal exposure during pregnancy [Unknown]

NARRATIVE: CASE EVENT DATE: 2005
